FAERS Safety Report 8416854 (Version 3)
Quarter: 2013Q1

REPORT INFORMATION
  Report Type: Report from Study
  Country: DE (occurrence: DE)
  Receive Date: 20120220
  Receipt Date: 20130218
  Transmission Date: 20140127
  Serious: Yes (Hospitalization)
  Sender: FDA-Public Use
  Company Number: DE-MPIJNJ-2011-06600

PATIENT
  Age: 47 Year
  Sex: Female
  Weight: 82 kg

DRUGS (7)
  1. VELCADE [Suspect]
     Indication: PLASMA CELL MYELOMA
     Dosage: 2.5 MG, UNK
     Route: 042
     Dates: start: 20111103, end: 20111205
  2. ACIC                               /00587301/ [Concomitant]
     Indication: PROPHYLAXIS
     Dosage: 400 MG, TID
     Route: 048
     Dates: start: 20111103, end: 20111221
  3. COTRIMOXAZOL [Concomitant]
     Indication: PROPHYLAXIS
     Dosage: 500 MG, BID
     Route: 048
     Dates: start: 20111103, end: 20111115
  4. PANTOPRAZOL [Concomitant]
     Indication: PROPHYLAXIS
     Dosage: 40 MG, BID
     Route: 048
     Dates: start: 20111103, end: 20111221
  5. TILIDIN [Concomitant]
     Indication: PAIN
     Dosage: 50 MG, BID
     Dates: start: 20111103, end: 20111221
  6. CYCLOPHOSPHAMIDE [Concomitant]
     Indication: PLASMA CELL MYELOMA
     Dosage: 1600 MG, UNK
     Route: 042
     Dates: start: 20111124, end: 20111124
  7. DEXAMETHASONE [Concomitant]
     Indication: PLASMA CELL MYELOMA
     Dosage: 40 MG, QD
     Route: 048
     Dates: start: 20111124, end: 20111206

REACTIONS (1)
  - Proteinuria [Recovered/Resolved]
